FAERS Safety Report 9659190 (Version 1)
Quarter: 2013Q4

REPORT INFORMATION
  Report Type: Spontaneous
  Country: US (occurrence: US)
  Receive Date: 20131031
  Receipt Date: 20131031
  Transmission Date: 20140711
  Serious: No
  Sender: FDA-Public Use
  Company Number: US-B.I. PHARMACEUTICALS,INC./RIDGEFIELD-2013-BI-33363BP

PATIENT
  Sex: Female

DRUGS (6)
  1. ZANTAC 150 (RANITIDINE HYDROCHLORIDE) [Suspect]
     Indication: HISTAMINE LEVEL INCREASED
     Dosage: 300 MG
  2. ZANTAC 150 (RANITIDINE HYDROCHLORIDE) [Suspect]
     Indication: ANTIALLERGIC THERAPY
  3. ZANTAC 150 (RANITIDINE HYDROCHLORIDE) [Suspect]
     Indication: GASTRIC PH DECREASED
  4. ZANTAC 150 (RANITIDINE HYDROCHLORIDE) [Suspect]
     Indication: FLATULENCE
  5. ZANTAC 150 (RANITIDINE HYDROCHLORIDE) [Suspect]
     Indication: ABDOMINAL DISTENSION
  6. ZANTAC 150 (RANITIDINE HYDROCHLORIDE) [Suspect]
     Indication: MUSCLE SPASMS

REACTIONS (2)
  - Feeling drunk [Unknown]
  - Off label use [Unknown]
